FAERS Safety Report 7569646 (Version 11)
Quarter: 2014Q1

REPORT INFORMATION
  Report Type: Report from Study
  Country: BR (occurrence: BR)
  Receive Date: 20100901
  Receipt Date: 20140303
  Transmission Date: 20141002
  Serious: Yes (Hospitalization, Other)
  Sender: FDA-Public Use
  Company Number: BR-ROCHE-697984

PATIENT
  Age: 56 Year
  Sex: Female
  Weight: 72 kg

DRUGS (39)
  1. MABTHERA [Suspect]
     Indication: RHEUMATOID ARTHRITIS
     Dosage: FORM: INFUSION. DOSE REPORTED AS 1000 MG/ML, HER LAST INFUSION WAS ON MID AUG 2013.
     Route: 042
     Dates: start: 20080801, end: 200808
  2. MABTHERA [Suspect]
     Dosage: DOSE 1000 MG/ML
     Route: 042
     Dates: start: 20090701, end: 20090715
  3. MABTHERA [Suspect]
     Dosage: DOSE 1000 MG/ML
     Route: 042
     Dates: start: 20090805, end: 20090820
  4. MABTHERA [Suspect]
     Dosage: DOSE: 1000 MG/ML
     Route: 042
  5. MABTHERA [Suspect]
     Route: 042
     Dates: start: 20110518, end: 20110518
  6. MABTHERA [Suspect]
     Route: 042
     Dates: start: 20110601, end: 20110601
  7. MABTHERA [Suspect]
     Route: 042
  8. MABTHERA [Suspect]
     Route: 042
  9. MABTHERA [Suspect]
     Route: 042
  10. MABTHERA [Suspect]
     Route: 042
  11. MABTHERA [Suspect]
     Route: 042
  12. CLONAZEPAM [Suspect]
     Indication: SLEEP DISORDER
     Route: 065
  13. CLONAZEPAM [Suspect]
     Route: 065
  14. CLONAZEPAM [Suspect]
     Dosage: FREQUENCY: 2 TABLTES PER DAY
     Route: 065
  15. CHLOROQUINE [Suspect]
     Indication: RHEUMATOID ARTHRITIS
     Route: 065
  16. FOLIC ACID [Concomitant]
     Dosage: 5 TIMES PER ONE WEEK (WED TO SUND)
     Route: 065
  17. DEFLAZACORT [Concomitant]
     Route: 065
  18. ARAVA [Concomitant]
     Route: 065
  19. CELEBRA [Concomitant]
     Route: 065
  20. TANDRILAX [Concomitant]
  21. TEOLONG [Concomitant]
     Indication: ASTHMA
     Route: 065
  22. PREDSIM [Concomitant]
     Route: 065
  23. ENALAPRIL [Concomitant]
     Indication: HYPERTENSION
     Route: 065
  24. DILACORON [Concomitant]
     Indication: HYPERTENSION
     Dosage: DILACORON AP
     Route: 065
  25. SPIRIVA [Concomitant]
     Indication: ASTHMA
  26. CEBRILIN [Concomitant]
     Indication: DYSTONIA
     Route: 065
  27. OMEPRAZOLE [Concomitant]
     Indication: PROPHYLAXIS
  28. LABIRIN [Concomitant]
  29. MARAX (GERMANY) [Concomitant]
     Indication: ASTHMA
     Route: 065
  30. SINGULAIR [Concomitant]
     Indication: ASTHMA
     Route: 065
  31. FLUIR [Concomitant]
     Route: 065
  32. METHOTREXATE [Concomitant]
     Dosage: MON TO WED. TECHNOMET
     Route: 065
  33. LEUCOGEN (ASPARAGINASE) [Concomitant]
     Route: 065
  34. RIVOTRIL [Concomitant]
     Route: 065
  35. PREDNISONE [Concomitant]
  36. SERETIDE [Concomitant]
  37. INDACATEROL [Concomitant]
  38. DAXAS [Concomitant]
  39. DUOVENT [Concomitant]

REACTIONS (53)
  - Asthma [Recovering/Resolving]
  - Pneumonia [Recovered/Resolved]
  - Pneumonia [Recovered/Resolved]
  - Diabetes mellitus [Recovered/Resolved]
  - Urinary incontinence [Recovered/Resolved]
  - Renal pain [Recovered/Resolved]
  - Cast application [Recovered/Resolved]
  - Glaucoma [Unknown]
  - Hiatus hernia [Recovering/Resolving]
  - Bronchiectasis [Recovered/Resolved]
  - Ligament injury [Not Recovered/Not Resolved]
  - Joint effusion [Recovering/Resolving]
  - Tibia fracture [Recovering/Resolving]
  - Tendonitis [Recovering/Resolving]
  - Nuclear magnetic resonance imaging abnormal [Unknown]
  - Eye disorder [Unknown]
  - Burning sensation [Recovered/Resolved]
  - Drug ineffective [Unknown]
  - Depressed mood [Not Recovered/Not Resolved]
  - Dizziness [Recovered/Resolved]
  - Hyperhidrosis [Recovered/Resolved]
  - Visual impairment [Recovered/Resolved]
  - Local swelling [Not Recovered/Not Resolved]
  - Arthralgia [Unknown]
  - Pain [Unknown]
  - Headache [Unknown]
  - Weight decreased [Recovering/Resolving]
  - Hypoglycaemia [Unknown]
  - Glaucoma [Recovering/Resolving]
  - Eye pain [Recovering/Resolving]
  - Duodenal ulcer [Recovering/Resolving]
  - Blood glucose fluctuation [Recovering/Resolving]
  - Eye disorder [Unknown]
  - Rheumatoid arthritis [Recovering/Resolving]
  - Nausea [Unknown]
  - Insomnia [Recovering/Resolving]
  - Anxiety [Recovering/Resolving]
  - Local swelling [Recovering/Resolving]
  - Joint swelling [Recovering/Resolving]
  - Upper extremity mass [Recovering/Resolving]
  - Pain in extremity [Recovering/Resolving]
  - Arthralgia [Recovering/Resolving]
  - Arthralgia [Recovering/Resolving]
  - Micturition disorder [Unknown]
  - Vomiting [Unknown]
  - Bursitis [Recovered/Resolved]
  - Gastrooesophageal reflux disease [Recovered/Resolved]
  - Oedema [Recovered/Resolved]
  - Dry eye [Recovered/Resolved]
  - Muscle spasms [Recovered/Resolved]
  - Bronchitis [Recovered/Resolved]
  - Fatigue [Recovered/Resolved]
  - Hypoaesthesia [Recovered/Resolved]
